FAERS Safety Report 15450314 (Version 1)
Quarter: 2018Q4

REPORT INFORMATION
  Report Type: Spontaneous
  Country: US (occurrence: US)
  Receive Date: 20181001
  Receipt Date: 20181001
  Transmission Date: 20190204
  Serious: No
  Sender: FDA-Public Use
  Company Number: US-PFIZER INC-2017475982

PATIENT
  Age: 12 Year
  Sex: Male

DRUGS (3)
  1. GENOTROPIN [Suspect]
     Active Substance: SOMATROPIN
     Indication: GROWTH HORMONE DEFICIENCY
     Dosage: UNK UNK, DAILY (1.4 DAILY DOSE)
     Dates: start: 20140327
  2. GENOTROPIN [Suspect]
     Active Substance: SOMATROPIN
     Dosage: 2.6 MG, DAILY
     Dates: start: 20140610
  3. GENOTROPIN [Suspect]
     Active Substance: SOMATROPIN
     Dosage: 2.4 MG, UNK

REACTIONS (14)
  - Insulin-like growth factor decreased [Unknown]
  - Alanine aminotransferase increased [Unknown]
  - Product dose omission [Unknown]
  - Anion gap increased [Unknown]
  - Blood sodium increased [Unknown]
  - High density lipoprotein decreased [Unknown]
  - Blood urea nitrogen/creatinine ratio increased [Unknown]
  - Blood cholesterol increased [Unknown]
  - Low density lipoprotein decreased [Unknown]
  - Aspartate aminotransferase increased [Unknown]
  - Device malfunction [Unknown]
  - Blood triglycerides increased [Unknown]
  - Carbon dioxide decreased [Unknown]
  - Blood alkaline phosphatase increased [Unknown]

NARRATIVE: CASE EVENT DATE: 20140731
